FAERS Safety Report 5937494-6 (Version None)
Quarter: 2008Q4

REPORT INFORMATION
  Report Type: 
  Country: None (occurrence: None)
  Receive Date: 20081031
  Receipt Date: 20081028
  Transmission Date: 20090506
  Serious: Yes (Other)
  Sender: FDA-Public Use
  Company Number: D0058676A

PATIENT
  Age: 8 Year
  Sex: Male
  Weight: 3.5 kg

DRUGS (3)
  1. VIANI [Suspect]
     Dosage: 1PUFF PER DAY
     Route: 055
     Dates: start: 20080618, end: 20080908
  2. FLUTIDE [Concomitant]
     Indication: ASTHMA
     Route: 055
  3. BRONCHOSPRAY NOVO [Concomitant]
     Route: 065

REACTIONS (7)
  - FEAR [None]
  - HEADACHE [None]
  - IRRITABILITY [None]
  - MENTAL DISORDER [None]
  - NIGHTMARE [None]
  - SLEEP DISORDER [None]
  - SUICIDAL IDEATION [None]
